FAERS Safety Report 13301732 (Version 6)
Quarter: 2018Q4

REPORT INFORMATION
  Report Type: Spontaneous
  Country: US (occurrence: US)
  Receive Date: 20170307
  Receipt Date: 20181029
  Transmission Date: 20190204
  Serious: Yes (Other)
  Sender: FDA-Public Use
  Company Number: US-LUNDBECK-DKLU2027194

PATIENT
  Age: 76 Year
  Sex: Male

DRUGS (6)
  1. NORTHERA [Suspect]
     Active Substance: DROXIDOPA
     Indication: AUTONOMIC NEUROPATHY
     Dosage: SCHEDULE C - FIXED DOSE
     Route: 048
     Dates: start: 20170223
  2. MIDODRINE [Concomitant]
     Active Substance: MIDODRINE
     Indication: PRODUCT USED FOR UNKNOWN INDICATION
     Route: 065
  3. NORTHERA [Suspect]
     Active Substance: DROXIDOPA
     Indication: ORTHOSTATIC HYPOTENSION
     Route: 048
     Dates: start: 20170223
  4. NORTHERA [Suspect]
     Active Substance: DROXIDOPA
     Indication: HYPOTENSION
     Dosage: SCHEDULE C, TITRATION COMPLETE
     Route: 048
     Dates: start: 20170220
  5. NORTHERA [Suspect]
     Active Substance: DROXIDOPA
     Indication: SYNCOPE
  6. NORTHERA [Suspect]
     Active Substance: DROXIDOPA
     Indication: DIZZINESS

REACTIONS (9)
  - Rib fracture [Unknown]
  - Asthenia [Unknown]
  - Loss of consciousness [Unknown]
  - Dyspnoea [Unknown]
  - Blood pressure decreased [Unknown]
  - Blood pressure increased [Unknown]
  - Testicular swelling [Unknown]
  - Peripheral swelling [Unknown]
  - Pollakiuria [Unknown]

NARRATIVE: CASE EVENT DATE: 201702
